FAERS Safety Report 23069608 (Version 1)
Quarter: 2023Q4

REPORT INFORMATION
  Report Type: Spontaneous
  Country: US (occurrence: US)
  Receive Date: 20231016
  Receipt Date: 20231016
  Transmission Date: 20240109
  Serious: No
  Sender: FDA-Public Use
  Company Number: US-JNJFOC-20231005885

PATIENT

DRUGS (1)
  1. MOTRIN [Suspect]
     Active Substance: IBUPROFEN
     Indication: Product used for unknown indication
     Dosage: TOOK FOUR AT A TIME
     Route: 065

REACTIONS (2)
  - Adverse event [Unknown]
  - Incorrect dose administered [Unknown]
